FAERS Safety Report 19783246 (Version 2)
Quarter: 2021Q3

REPORT INFORMATION
  Report Type: Spontaneous
  Country: JP (occurrence: JP)
  Receive Date: 20210902
  Receipt Date: 20210914
  Transmission Date: 20211014
  Serious: No
  Sender: FDA-Public Use
  Company Number: JP-BRACCO-2021JP03788

PATIENT
  Age: 58 Year
  Sex: Male

DRUGS (1)
  1. IOPAMIDOL [Suspect]
     Active Substance: IOPAMIDOL
     Dosage: UNK UNK, SINGLE

REACTIONS (2)
  - Fixed eruption [Unknown]
  - Pigmentation disorder [Unknown]
